FAERS Safety Report 4608620-6 (Version None)
Quarter: 2005Q1

REPORT INFORMATION
  Report Type: 
  Country: None (occurrence: None)
  Receive Date: 20050311
  Receipt Date: 20050311
  Transmission Date: 20050727
  Serious: Yes (Death)
  Sender: FDA-Public Use
  Company Number: None

PATIENT
  Sex: Female
  Weight: 55 kg

DRUGS (1)
  1. INTERERFERON-ALPHA [Suspect]
     Dosage: 9.0 MU SC 3X/WEEK.  CYCLE = 4 WEEKS
     Route: 058
     Dates: start: 20050110, end: 20050119

REACTIONS (1)
  - DISEASE PROGRESSION [None]
